FAERS Safety Report 14889770 (Version 2)
Quarter: 2018Q3

REPORT INFORMATION
  Report Type: Report from Study
  Country: CA (occurrence: CA)
  Receive Date: 20180514
  Receipt Date: 20180918
  Transmission Date: 20181010
  Serious: Yes (Other)
  Sender: FDA-Public Use
  Company Number: CA-UCBSA-2017041873

PATIENT
  Sex: Female

DRUGS (2)
  1. CERTOLIZUMAB PEGOL AUTOCLICKS [Suspect]
     Active Substance: CERTOLIZUMAB PEGOL
     Dosage: 200 MG, EV 2 WEEKS(QOW)
     Route: 058
  2. CERTOLIZUMAB PEGOL AUTOCLICKS [Suspect]
     Active Substance: CERTOLIZUMAB PEGOL
     Indication: RHEUMATOID ARTHRITIS
     Dosage: 400 MG, EV 2 WEEKS(QOW)
     Route: 058
     Dates: start: 20140806

REACTIONS (14)
  - Arthropathy [Not Recovered/Not Resolved]
  - Memory impairment [Unknown]
  - Drug dose omission [Unknown]
  - Wheezing [Unknown]
  - Renal failure [Unknown]
  - Rash generalised [Unknown]
  - Lung disorder [Unknown]
  - Hypersensitivity [Not Recovered/Not Resolved]
  - Rheumatoid arthritis [Unknown]
  - Oedema peripheral [Unknown]
  - Eczema [Not Recovered/Not Resolved]
  - Cardiac disorder [Unknown]
  - Inappropriate schedule of drug administration [Unknown]
  - Rib fracture [Unknown]
